FAERS Safety Report 7889445-5 (Version None)
Quarter: 2011Q4

REPORT INFORMATION
  Report Type: 
  Country: None (occurrence: None)
  Receive Date: 20111101
  Receipt Date: 20111024
  Transmission Date: 20120403
  Serious: Yes (Hospitalization, Other)
  Sender: FDA-Public Use
  Company Number: 2011SP014602

PATIENT
  Age: 46 Year
  Sex: Female
  Weight: 74.8435 kg

DRUGS (4)
  1. RANITIDINE [Concomitant]
  2. OXYCODONE HCL [Concomitant]
  3. BALACYCLOVIR HCL [Concomitant]
  4. NUVARING [Suspect]
     Indication: MENSTRUAL DISORDER
     Dates: start: 20081001, end: 20090428

REACTIONS (10)
  - IMPAIRED WORK ABILITY [None]
  - PLEURAL EFFUSION [None]
  - PULMONARY INFARCTION [None]
  - ECONOMIC PROBLEM [None]
  - ALANINE AMINOTRANSFERASE INCREASED [None]
  - PULMONARY EMBOLISM [None]
  - EMPHYSEMA [None]
  - INTERNATIONAL NORMALISED RATIO DECREASED [None]
  - ASPARTATE AMINOTRANSFERASE INCREASED [None]
  - BLOOD ALKALINE PHOSPHATASE INCREASED [None]
